FAERS Safety Report 5456441-7 (Version None)
Quarter: 2007Q3

REPORT INFORMATION
  Report Type: 
  Country: None (occurrence: None)
  Receive Date: 20070918
  Receipt Date: 20070910
  Transmission Date: 20080115
  Serious: Yes (Other)
  Sender: FDA-Public Use
  Company Number: US-ELI_LILLY_AND_COMPANY-US200708002333

PATIENT
  Age: 73 Year
  Sex: Female

DRUGS (2)
  1. HUMULIN 70/30 [Suspect]
     Indication: DIABETES MELLITUS
  2. LANTUS [Concomitant]
     Indication: BLOOD GLUCOSE INCREASED
     Dosage: 10 U, EACH EVENING

REACTIONS (12)
  - BLOOD GLUCOSE DECREASED [None]
  - BLOOD GLUCOSE INCREASED [None]
  - CATARACT [None]
  - DIZZINESS [None]
  - DRUG INEFFECTIVE [None]
  - GAIT DISTURBANCE [None]
  - LASER THERAPY [None]
  - MULTIPLE ALLERGIES [None]
  - SPEECH DISORDER [None]
  - THROMBOSIS [None]
  - VISUAL ACUITY REDUCED [None]
  - VITREOUS HAEMORRHAGE [None]
